FAERS Safety Report 20656816 (Version 3)
Quarter: 2022Q2

REPORT INFORMATION
  Report Type: Spontaneous
  Country: US (occurrence: US)
  Receive Date: 20220331
  Receipt Date: 20220630
  Transmission Date: 20220721
  Serious: No
  Sender: FDA-Public Use
  Company Number: US-SA-2022SA108413

PATIENT
  Age: 8 Year
  Sex: Female
  Weight: 20 kg

DRUGS (6)
  1. ALDURAZYME [Suspect]
     Active Substance: LARONIDASE
     Indication: Mucopolysaccharidosis I
     Dosage: 11.6 MG, QW
     Route: 042
  2. ALDURAZYME [Suspect]
     Active Substance: LARONIDASE
     Dosage: 11.6 MG, QW
     Route: 042
     Dates: start: 20220315, end: 20220315
  3. ALDURAZYME [Suspect]
     Active Substance: LARONIDASE
     Dosage: 11.6 MG, QW
     Route: 042
     Dates: start: 20220412, end: 20220412
  4. DIPHENHYDRAMINE [Concomitant]
     Active Substance: DIPHENHYDRAMINE
     Indication: Premedication
     Dosage: 20 MG
     Route: 048
     Dates: start: 20220412, end: 20220412
  5. ACETAMINOPHEN [Concomitant]
     Active Substance: ACETAMINOPHEN
     Indication: Premedication
     Dosage: 300 MG
     Route: 048
     Dates: start: 20220412, end: 20220412
  6. PEPCID [Concomitant]
     Active Substance: FAMOTIDINE
     Indication: Premedication
     Dosage: 20 MG
     Route: 042
     Dates: start: 20220412, end: 20220412

REACTIONS (1)
  - Urticaria [Recovered/Resolved]
